FAERS Safety Report 10152479 (Version 4)
Quarter: 2014Q2

REPORT INFORMATION
  Report Type: Spontaneous
  Country: US (occurrence: US)
  Receive Date: 20140505
  Receipt Date: 20140528
  Transmission Date: 20141212
  Serious: No
  Sender: FDA-Public Use
  Company Number: US-009507513-1405USA001669

PATIENT
  Sex: 0

DRUGS (1)
  1. NEXPLANON [Suspect]
     Route: 059

REACTIONS (3)
  - Complication of device removal [Unknown]
  - Product quality issue [Unknown]
  - No adverse event [Unknown]
